FAERS Safety Report 16939668 (Version 1)
Quarter: 2019Q4

REPORT INFORMATION
  Report Type: Spontaneous
  Country: CL (occurrence: CL)
  Receive Date: 20191021
  Receipt Date: 20191021
  Transmission Date: 20200122
  Serious: Yes (Other)
  Sender: FDA-Public Use
  Company Number: CL-B.I. PHARMACEUTICALS,INC./RIDGEFIELD-2019-BI-108126

PATIENT
  Age: 63 Year
  Sex: Male

DRUGS (1)
  1. JARDIANCE DUO [Suspect]
     Active Substance: EMPAGLIFLOZIN\METFORMIN HYDROCHLORIDE
     Indication: PRODUCT USED FOR UNKNOWN INDICATION
     Route: 065
     Dates: start: 201904

REACTIONS (2)
  - Autonomic nervous system imbalance [Unknown]
  - Syncope [Unknown]

NARRATIVE: CASE EVENT DATE: 201910
